FAERS Safety Report 7727727-8 (Version None)
Quarter: 2011Q3

REPORT INFORMATION
  Report Type: 
  Country: None (occurrence: None)
  Receive Date: 20110902
  Receipt Date: 20110826
  Transmission Date: 20111222
  Serious: Yes (Hospitalization)
  Sender: FDA-Public Use
  Company Number: TR-B.I. PHARMACEUTICALS,INC./RIDGEFIELD-2011-DE-04857GD

PATIENT
  Age: 77 Year
  Sex: Male

DRUGS (8)
  1. TAMSULOSIN HYDROCHLORIDE [Suspect]
     Dosage: 0.4 MG
     Route: 048
  2. RAMIPRIL [Suspect]
     Dosage: 2.5 MG
     Route: 048
  3. VITAMIN B-12 [Suspect]
     Route: 048
  4. WARFARIN SODIUM [Suspect]
     Indication: ATRIAL FIBRILLATION
     Dosage: 5 MG
  5. METOPROLOL [Suspect]
     Dosage: 50 MG
     Route: 048
  6. SIMVASTATIN [Suspect]
     Dosage: 20 MG
     Route: 048
  7. BILBERRY [Suspect]
     Dosage: LARGE AMOUNTS OF RAW BERRIES
     Route: 048
  8. WARFARIN SODIUM [Suspect]
     Dosage: 2.5 MG

REACTIONS (4)
  - HAEMATURIA [None]
  - RECTAL HAEMORRHAGE [None]
  - DIZZINESS [None]
  - DRUG INTERACTION [None]
